FAERS Safety Report 8870393 (Version 1)
Quarter: 2012Q4

REPORT INFORMATION
  Report Type: 
  Country: US (occurrence: US)
  Receive Date: 20121026
  Receipt Date: 20121026
  Transmission Date: 20130627
  Serious: No
  Sender: FDA-Public Use
  Company Number: US-AMGEN-USASP2012047364

PATIENT
  Sex: Female

DRUGS (13)
  1. ENBREL [Suspect]
     Indication: PRODUCT USED FOR UNKNOWN INDICATION
     Dosage: 50 mg, qwk
     Route: 058
  2. ORENCIA [Concomitant]
  3. FLEXERIL                           /00428402/ [Concomitant]
     Dosage: 10 mg, UNK
  4. NEURONTIN [Concomitant]
     Dosage: 100 mg, UNK
  5. ARAVA [Concomitant]
     Dosage: 20 mg, UNK
  6. CLONAZEPAM [Concomitant]
     Dosage: 0.5 mg, UNK
  7. METFORMIN                          /00082702/ [Concomitant]
     Dosage: 500 mg, UNK
  8. OMEPRAZOLE [Concomitant]
     Dosage: 20 mg, UNK
  9. FEXOFENADINE [Concomitant]
     Dosage: 180 mg, UNK
  10. ASPIRIN [Concomitant]
     Dosage: 325 mg, UNK
  11. FOLIC ACID [Concomitant]
     Dosage: 1 mg, UNK
  12. GLUCOSAMINE + CHONDROITIN          /01430901/ [Concomitant]
     Dosage: 1500 com
  13. ALEVE [Concomitant]
     Dosage: 220 mg, UNK

REACTIONS (1)
  - Drug ineffective [Unknown]
